FAERS Safety Report 13679877 (Version 2)
Quarter: 2018Q3

REPORT INFORMATION
  Report Type: Spontaneous
  Country: RU (occurrence: RU)
  Receive Date: 20170622
  Receipt Date: 20180924
  Transmission Date: 20181010
  Serious: Yes (Hospitalization)
  Sender: FDA-Public Use
  Company Number: RU-009507513-1706RUS007596

PATIENT
  Age: 30 Year
  Sex: Female

DRUGS (1)
  1. IMPLANON [Suspect]
     Active Substance: ETONOGESTREL
     Dosage: 1 DF, UNK
     Route: 059
     Dates: start: 20151018

REACTIONS (8)
  - Chronic gastritis [Recovered/Resolved]
  - Amenorrhoea [Unknown]
  - Flatulence [Unknown]
  - Autonomic nervous system imbalance [Unknown]
  - Vaginal haemorrhage [Unknown]
  - Adenomyosis [Not Recovered/Not Resolved]
  - Impaired healing [Recovered/Resolved]
  - Vaginal atresia [Unknown]

NARRATIVE: CASE EVENT DATE: 20160607
